FAERS Safety Report 5472186-1 (Version None)
Quarter: 2007Q3

REPORT INFORMATION
  Report Type: 
  Country: None (occurrence: None)
  Receive Date: 20070926
  Receipt Date: 20070917
  Transmission Date: 20080115
  Serious: Yes (Hospitalization)
  Sender: FDA-Public Use
  Company Number: 2007SP017269

PATIENT
  Age: 57 Year
  Sex: Female
  Weight: 94.8018 kg

DRUGS (5)
  1. PEG-INTRON [Suspect]
     Indication: HEPATITIS C
     Dosage: 150 MCG; QW; SC
     Route: 058
     Dates: start: 20070713, end: 20070724
  2. RIBAVIRIN [Suspect]
     Indication: HEPATITIS C
     Dosage: 600 MG; BID; PO
     Route: 048
     Dates: start: 20070713, end: 20070724
  3. LISINOPRIL (CON.) [Concomitant]
  4. HCTZ (CON.) [Concomitant]
  5. LEVOXYL (CON.) [Concomitant]

REACTIONS (14)
  - ANXIETY [None]
  - APHAGIA [None]
  - ASTHENIA [None]
  - CHEST DISCOMFORT [None]
  - CHEST PAIN [None]
  - DIARRHOEA [None]
  - DIZZINESS [None]
  - EMOTIONAL DISTRESS [None]
  - HEPATIC PAIN [None]
  - HYPERTENSION [None]
  - MYOCARDIAL INFARCTION [None]
  - NAUSEA [None]
  - PAROSMIA [None]
  - VOMITING [None]
